FAERS Safety Report 16765930 (Version 6)
Quarter: 2019Q4

REPORT INFORMATION
  Report Type: Report from Study
  Country: None (occurrence: TR)
  Receive Date: 20190903
  Receipt Date: 20191227
  Transmission Date: 20200122
  Serious: Yes (Death, Hospitalization)
  Sender: FDA-Public Use
  Company Number: TR-ABBVIE-19K-161-2909140-00

PATIENT
  Age: 63 Year
  Sex: Male

DRUGS (6)
  1. PRELICA [Concomitant]
     Indication: PAIN IN EXTREMITY
     Route: 048
     Dates: start: 2015
  2. DUODOPA [Suspect]
     Active Substance: CARBIDOPA\LEVODOPA
     Dosage: MORNING DOSE (ML): 6.00 CONTINUOUS DOSE (ML): 4.80 EXTRA DOSE (ML): 2.00
     Route: 050
     Dates: start: 20190710
  3. DESYREL [Concomitant]
     Active Substance: TRAZODONE HYDROCHLORIDE
     Indication: SLEEP DISORDER
     Route: 048
     Dates: start: 201801
  4. EXELON PATCH 10 CM [Concomitant]
     Indication: DEMENTIA
     Route: 062
     Dates: start: 20180305
  5. MADOPAR HBS [Concomitant]
     Active Substance: BENSERAZIDE HYDROCHLORIDE\LEVODOPA
     Indication: PARKINSON^S DISEASE
     Route: 048
     Dates: start: 20180305
  6. DUODOPA [Suspect]
     Active Substance: CARBIDOPA\LEVODOPA
     Indication: PARKINSON^S DISEASE
     Dosage: MORNING DOSE (ML): 6.00 CONTINUOUS DOSE (ML): 4.80 EXTRA DOSE (ML): 2.00
     Route: 050
     Dates: start: 20180305

REACTIONS (3)
  - Death [Fatal]
  - Malnutrition [Fatal]
  - Upper respiratory tract infection [Recovered/Resolved]

NARRATIVE: CASE EVENT DATE: 2019
